FAERS Safety Report 25374008 (Version 1)
Quarter: 2025Q2

REPORT INFORMATION
  Report Type: Spontaneous
  Country: IT (occurrence: IT)
  Receive Date: 20250529
  Receipt Date: 20250529
  Transmission Date: 20250717
  Serious: Yes (Hospitalization, Other)
  Sender: EMD SERONO INC
  Company Number: IT-MINISAL02-1039891

PATIENT
  Age: 31 Year
  Sex: Male

DRUGS (1)
  1. MAVENCLAD [Suspect]
     Active Substance: CLADRIBINE
     Indication: Relapsing multiple sclerosis
     Dates: start: 20240301

REACTIONS (1)
  - Clear cell papillary renal cell carcinoma [Unknown]

NARRATIVE: CASE EVENT DATE: 20240911
